FAERS Safety Report 5934646-6 (Version None)
Quarter: 2008Q4

REPORT INFORMATION
  Report Type: 
  Country: None (occurrence: None)
  Receive Date: 20081010
  Receipt Date: 20080730
  Transmission Date: 20090506
  Serious: No
  Sender: FDA-Public Use
  Company Number: 2008BM000153

PATIENT
  Age: 18 Year
  Sex: Male

DRUGS (3)
  1. KUVAN [Suspect]
     Indication: PHENYLKETONURIA
     Dosage: 20 MG/KG;QD;PO; 10 MG/KG;QD;PO; 100 MG;QD;PO
     Route: 048
     Dates: start: 20080522, end: 20080530
  2. KUVAN [Suspect]
     Indication: PHENYLKETONURIA
     Dosage: 20 MG/KG;QD;PO; 10 MG/KG;QD;PO; 100 MG;QD;PO
     Route: 048
     Dates: start: 20080531, end: 20080601
  3. KUVAN [Suspect]
     Indication: PHENYLKETONURIA
     Dosage: 20 MG/KG;QD;PO; 10 MG/KG;QD;PO; 100 MG;QD;PO
     Route: 048
     Dates: start: 20080602, end: 20080604

REACTIONS (1)
  - DIARRHOEA [None]
